FAERS Safety Report 11498188 (Version 2)
Quarter: 2015Q4

REPORT INFORMATION
  Report Type: Spontaneous
  Country: US (occurrence: US)
  Receive Date: 20150911
  Receipt Date: 20151002
  Transmission Date: 20160304
  Serious: Yes (Hospitalization)
  Sender: FDA-Public Use
  Company Number: US-ACTELION-A-US2014-108819

PATIENT
  Age: 27 Year
  Sex: Female

DRUGS (3)
  1. VELETRI [Suspect]
     Active Substance: EPOPROSTENOL
     Indication: PULMONARY ARTERIAL HYPERTENSION
     Dosage: 56 NG/KG, PER MIN
     Route: 042
     Dates: start: 20110928
  2. ASPIRIN. [Concomitant]
     Active Substance: ASPIRIN
  3. REVATIO [Concomitant]
     Active Substance: SILDENAFIL CITRATE

REACTIONS (6)
  - Catheter site erythema [Unknown]
  - Staphylococcal infection [Unknown]
  - Device related infection [Unknown]
  - Catheter management [Unknown]
  - Catheter site pain [Unknown]
  - Catheter site swelling [Unknown]

NARRATIVE: CASE EVENT DATE: 20141120
